FAERS Safety Report 9519554 (Version 2)
Quarter: 2013Q4

REPORT INFORMATION
  Report Type: Spontaneous
  Country: GB (occurrence: GB)
  Receive Date: 20130912
  Receipt Date: 20131209
  Transmission Date: 20140711
  Serious: Yes (Hospitalization, Other)
  Sender: FDA-Public Use
  Company Number: PHHY2013GB096701

PATIENT
  Age: 66 Year
  Sex: Female
  Weight: 165 kg

DRUGS (2)
  1. RAMIPRIL [Suspect]
     Indication: BLOOD PRESSURE INCREASED
     Dosage: 5 MG, QD
     Route: 048
     Dates: end: 20130704
  2. NITROGLYCERIN [Concomitant]
     Indication: ANGINA PECTORIS

REACTIONS (14)
  - Blood pressure increased [Unknown]
  - Dysstasia [Recovered/Resolved]
  - Tongue ulceration [Unknown]
  - Palpitations [Recovered/Resolved]
  - Headache [Recovered/Resolved]
  - Dizziness [Recovered/Resolved]
  - Balance disorder [Unknown]
  - Vision blurred [Unknown]
  - Joint swelling [Unknown]
  - Depressed mood [Unknown]
  - Drug ineffective [Unknown]
  - Agitation [Recovering/Resolving]
  - Discomfort [Recovering/Resolving]
  - Limb discomfort [Recovering/Resolving]
